FAERS Safety Report 7352410-0 (Version None)
Quarter: 2011Q1

REPORT INFORMATION
  Report Type: 
  Country: None (occurrence: None)
  Receive Date: 20110315
  Receipt Date: 20110303
  Transmission Date: 20110831
  Serious: Yes (Life-Threatening, Hospitalization, Other)
  Sender: FDA-Public Use
  Company Number: GB-PFIZER INC-2005106064

PATIENT
  Age: 43 Year
  Sex: Male

DRUGS (8)
  1. ACETYLSALICYLIC ACID [Suspect]
     Route: 048
  2. FLUOXETINE HYDROCHLORIDE [Suspect]
     Route: 048
  3. CITALOPRAM HYDROBROMIDE [Suspect]
     Route: 048
  4. FOLIC ACID [Suspect]
     Dosage: 30 TABLETS
     Route: 048
  5. PARACETAMOL [Suspect]
     Route: 048
  6. PERINDOPRIL ERBUMINE [Suspect]
     Route: 048
  7. AMLODIPINE BESILATE [Suspect]
     Route: 048
  8. ALCOHOL [Concomitant]

REACTIONS (7)
  - CIRCULATORY COLLAPSE [None]
  - COMA SCALE ABNORMAL [None]
  - INTENTIONAL OVERDOSE [None]
  - METABOLIC ACIDOSIS [None]
  - HYPOKALAEMIA [None]
  - HYPOTENSION [None]
  - URINARY RETENTION [None]
